FAERS Safety Report 7534003-5 (Version None)
Quarter: 2011Q2

REPORT INFORMATION
  Report Type: 
  Country: None (occurrence: None)
  Receive Date: 20110608
  Receipt Date: 20060720
  Transmission Date: 20111010
  Serious: Yes (Other)
  Sender: FDA-Public Use
  Company Number: PHFR2006IE02153

PATIENT
  Sex: Male

DRUGS (4)
  1. CLOZAPINE [Suspect]
     Indication: SCHIZOPHRENIA
     Dosage: 12.5 MG, BID
     Route: 048
     Dates: start: 20060703
  2. CLOZAPINE [Suspect]
     Dosage: 12.5 MG, AM
     Route: 048
     Dates: start: 20060704, end: 20060705
  3. CLONAZEPAM [Concomitant]
  4. CLOZAPINE [Suspect]
     Dosage: 25 MG, PM

REACTIONS (7)
  - SUICIDAL IDEATION [None]
  - INTENTIONAL SELF-INJURY [None]
  - SINUS TACHYCARDIA [None]
  - AGITATION [None]
  - BLOOD PRESSURE INCREASED [None]
  - MENTAL DISORDER [None]
  - HALLUCINATION [None]
